FAERS Safety Report 7827426-8 (Version None)
Quarter: 2011Q4

REPORT INFORMATION
  Report Type: 
  Country: None (occurrence: None)
  Receive Date: 20111020
  Receipt Date: 20111011
  Transmission Date: 20120403
  Serious: Yes (Hospitalization)
  Sender: FDA-Public Use
  Company Number: GB-SANOFI-AVENTIS-2011SA067290

PATIENT
  Age: 26 Year
  Sex: Female

DRUGS (4)
  1. PREDNISOLONE [Suspect]
     Indication: MIXED CONNECTIVE TISSUE DISEASE
     Route: 065
  2. AZATHIOPRINE [Suspect]
     Indication: MIXED CONNECTIVE TISSUE DISEASE
     Route: 065
  3. HEPARIN [Concomitant]
     Indication: MIXED CONNECTIVE TISSUE DISEASE
  4. HYDROXYCHLOROQUINE SULFATE [Suspect]
     Indication: MIXED CONNECTIVE TISSUE DISEASE
     Route: 065

REACTIONS (3)
  - ABDOMINAL PAIN [None]
  - HERPES ZOSTER [None]
  - RASH [None]
